FAERS Safety Report 26149653 (Version 1)
Quarter: 2025Q4

REPORT INFORMATION
  Report Type: Spontaneous
  Country: CA (occurrence: CA)
  Receive Date: 20251212
  Receipt Date: 20251212
  Transmission Date: 20260118
  Serious: Yes (Hospitalization)
  Sender: TEVA
  Company Number: CA-TEVA-VS-3401704

PATIENT
  Age: 4 Year
  Sex: Male
  Weight: 13 kg

DRUGS (3)
  1. VINCRISTINE [Suspect]
     Active Substance: VINCRISTINE
     Indication: Acute lymphocytic leukaemia
     Dosage: TIME INTERVAL: CYCLICAL: DOSE FORM : SOLUTION INTRAVENOUS , VINCRISTINE SULFATE INJECTION
     Route: 042
  2. VITAMIN D [Concomitant]
     Active Substance: VITAMIN D NOS
     Indication: Product used for unknown indication
     Dosage: DOSE FORM : NOT SPECIFIED
     Route: 065
  3. RYLAZE [Suspect]
     Active Substance: ASPARAGINASE ERWINIA CHRYSANTHEMI (RECOMBINANT)-RYWN
     Indication: Acute lymphocytic leukaemia
     Dosage: TIME INTERVAL: CYCLICAL: RYLAZE SINGLE-DOSE VIAL, RECOMBINANT , DOSE FORM :SOLUTION INTRAMUSCULAR
     Route: 042

REACTIONS (1)
  - Febrile neutropenia [Recovered/Resolved]
